FAERS Safety Report 23917530 (Version 1)
Quarter: 2024Q2

REPORT INFORMATION
  Report Type: Report from Study
  Country: US (occurrence: US)
  Receive Date: 20240529
  Receipt Date: 20240529
  Transmission Date: 20240716
  Serious: Yes (Hospitalization, Other)
  Sender: FDA-Public Use
  Company Number: US-ABBVIE-5771919

PATIENT
  Sex: Female

DRUGS (1)
  1. CREON [Suspect]
     Active Substance: PANCRELIPASE AMYLASE\PANCRELIPASE LIPASE\PANCRELIPASE PROTEASE
     Indication: Product used for unknown indication
     Route: 048
     Dates: start: 200207

REACTIONS (6)
  - Spinal fracture [Not Recovered/Not Resolved]
  - Lower limb fracture [Unknown]
  - Cervical vertebral fracture [Unknown]
  - Upper limb fracture [Unknown]
  - Back pain [Unknown]
  - Bone density abnormal [Not Recovered/Not Resolved]
